FAERS Safety Report 9898977 (Version 2)
Quarter: 2014Q1

REPORT INFORMATION
  Report Type: Report from Study
  Country: US (occurrence: US)
  Receive Date: 20140214
  Receipt Date: 20140311
  Transmission Date: 20141002
  Serious: Yes (Life-Threatening, Hospitalization, Disabling)
  Sender: FDA-Public Use
  Company Number: US-ACTELION-A-US2014-94682

PATIENT
  Age: 4 Month
  Sex: Female

DRUGS (3)
  1. TRACLEER [Suspect]
     Indication: PULMONARY ARTERIAL HYPERTENSION
     Dosage: 4 MG, BID
     Route: 048
     Dates: start: 20131113, end: 20131125
  2. TRACLEER [Suspect]
     Dosage: 5 MG, BID
     Route: 048
     Dates: start: 20131126, end: 20131215
  3. TRACLEER [Suspect]
     Dosage: 10 MG, BID
     Route: 048
     Dates: start: 20131216

REACTIONS (3)
  - Blood alkaline phosphatase increased [Not Recovered/Not Resolved]
  - Agitation [Not Recovered/Not Resolved]
  - Condition aggravated [Unknown]
